FAERS Safety Report 7606431-0 (Version None)
Quarter: 2011Q3

REPORT INFORMATION
  Report Type: 
  Country: None (occurrence: None)
  Receive Date: 20110705
  Receipt Date: 20110630
  Transmission Date: 20111222
  Serious: Yes (Life-Threatening, Hospitalization)
  Sender: FDA-Public Use
  Company Number: 2011SP030411

PATIENT
  Age: 59 Year
  Sex: Female

DRUGS (6)
  1. CYMBALTA [Suspect]
     Indication: NEURALGIA
     Dosage: 60 MG;QD;PO
     Route: 048
     Dates: start: 20110408, end: 20110422
  2. MIRTAZAPINE [Suspect]
     Indication: DEPRESSION
     Dosage: ;PO
     Route: 048
  3. PRAZEPAM [Suspect]
     Indication: ANXIETY
     Dosage: 10 MG;TID;PO
     Route: 048
  4. METHOTREXATE [Concomitant]
  5. ACETAMINOPHEN [Concomitant]
  6. FOLIC ACID [Concomitant]

REACTIONS (7)
  - HYPOTONIA [None]
  - OXYGEN SATURATION DECREASED [None]
  - HYPOTHERMIA [None]
  - COMA [None]
  - BLOOD ALCOHOL INCREASED [None]
  - SUICIDE ATTEMPT [None]
  - TREATMENT FAILURE [None]
